FAERS Safety Report 7551595-0 (Version None)
Quarter: 2011Q2

REPORT INFORMATION
  Report Type: 
  Country: None (occurrence: None)
  Receive Date: 20110616
  Receipt Date: 20110609
  Transmission Date: 20111010
  Serious: Yes (Other)
  Sender: FDA-Public Use
  Company Number: US-JNJFOC-20110205203

PATIENT
  Sex: Male

DRUGS (7)
  1. LEVAQUIN [Suspect]
     Indication: STAPHYLOCOCCAL INFECTION
     Route: 048
     Dates: start: 20060601, end: 20081201
  2. AVELOX [Suspect]
     Indication: SKIN LESION
     Route: 048
  3. LEVAQUIN [Suspect]
     Indication: URINARY TRACT INFECTION
     Route: 048
     Dates: start: 20060601, end: 20081201
  4. CIPROFLOXACIN [Suspect]
     Indication: SKIN LESION
     Route: 048
  5. LEVAQUIN [Suspect]
     Indication: EPIDIDYMITIS
     Route: 048
  6. LEVAQUIN [Suspect]
     Indication: PRODUCT USED FOR UNKNOWN INDICATION
     Route: 042
  7. LEVAQUIN [Suspect]
     Indication: ORCHITIS
     Route: 048

REACTIONS (4)
  - JOINT INJURY [None]
  - TENDON DISORDER [None]
  - PURPURA [None]
  - ROTATOR CUFF SYNDROME [None]
